FAERS Safety Report 15014599 (Version 1)
Quarter: 2018Q2

REPORT INFORMATION
  Report Type: Spontaneous
  Country: US (occurrence: US)
  Receive Date: 20180615
  Receipt Date: 20180615
  Transmission Date: 20180711
  Serious: Yes (Hospitalization)
  Sender: FDA-Public Use
  Company Number: US-SUN PHARMACEUTICAL INDUSTRIES LTD-2018US-175822

PATIENT
  Age: 29 Year
  Sex: Female

DRUGS (5)
  1. OXYCODONE [Suspect]
     Active Substance: OXYCODONE
     Indication: PRODUCT USED FOR UNKNOWN INDICATION
     Dosage: 10 MG, QID
     Route: 065
  2. KETAMINE [Suspect]
     Active Substance: KETAMINE
     Indication: SICKLE CELL ANAEMIA WITH CRISIS
  3. PARACETAMOL [Suspect]
     Active Substance: ACETAMINOPHEN
     Indication: PAIN MANAGEMENT
     Route: 065
  4. HYDROMORPHONE [Suspect]
     Active Substance: HYDROMORPHONE
     Indication: PAIN
     Route: 065
  5. KETAMINE [Suspect]
     Active Substance: KETAMINE
     Indication: ANALGESIC THERAPY
     Route: 065

REACTIONS (5)
  - Uterine irritability [Unknown]
  - Exposure during pregnancy [Unknown]
  - Preterm premature rupture of membranes [Unknown]
  - Uterine contractions during pregnancy [Unknown]
  - Drug ineffective [Unknown]
